FAERS Safety Report 13296884 (Version 1)
Quarter: 2017Q1

REPORT INFORMATION
  Report Type: Spontaneous
  Country: US (occurrence: US)
  Receive Date: 20170306
  Receipt Date: 20170306
  Transmission Date: 20170428
  Serious: No
  Sender: FDA-Public Use
  Company Number: US-TEVA-717413ACC

PATIENT
  Sex: Female

DRUGS (2)
  1. MEGACE [Suspect]
     Active Substance: MEGESTROL ACETATE
     Indication: BREAST CANCER RECURRENT
  2. TAMOXIFEN [Suspect]
     Active Substance: TAMOXIFEN
     Indication: BREAST CANCER RECURRENT
     Route: 065

REACTIONS (2)
  - Drug ineffective [Unknown]
  - Weight increased [Unknown]
